FAERS Safety Report 23390650 (Version 1)
Quarter: 2024Q1

REPORT INFORMATION
  Report Type: Spontaneous
  Country: NL (occurrence: None)
  Receive Date: 20240111
  Receipt Date: 20240111
  Transmission Date: 20240409
  Serious: Yes (Other)
  Sender: FDA-Public Use
  Company Number: 2024A007045

PATIENT
  Age: 72 Year
  Sex: Female
  Weight: 71 kg

DRUGS (2)
  1. OMEPRAZOLE [Suspect]
     Active Substance: OMEPRAZOLE
     Indication: Abdominal discomfort
     Dates: start: 20190110, end: 20221201
  2. VALSARTAN [Concomitant]
     Active Substance: VALSARTAN

REACTIONS (2)
  - Arrhythmia [Recovered/Resolved]
  - Flatulence [Recovered/Resolved]
